FAERS Safety Report 9233228 (Version 1)
Quarter: 2013Q2

REPORT INFORMATION
  Report Type: Spontaneous
  Country: US (occurrence: US)
  Receive Date: 20130416
  Receipt Date: 20130416
  Transmission Date: 20140414
  Serious: Yes (Other)
  Sender: FDA-Public Use
  Company Number: US-BANPHARM-20131002

PATIENT
  Age: 68 Year
  Sex: Male
  Weight: 78.02 kg

DRUGS (2)
  1. ALEVE LIQUID GELS 220 MG [Suspect]
     Indication: BACK PAIN
     Dosage: 1 DF, PRN,
     Route: 048
     Dates: start: 20120516, end: 20120516
  2. MAXIDE [Concomitant]

REACTIONS (2)
  - Hypersensitivity [Recovered/Resolved]
  - Weight decreased [Unknown]
